FAERS Safety Report 8263155-7 (Version None)
Quarter: 2012Q2

REPORT INFORMATION
  Report Type: 
  Country: None (occurrence: None)
  Receive Date: 20120405
  Receipt Date: 20120330
  Transmission Date: 20120825
  Serious: Yes (Hospitalization)
  Sender: FDA-Public Use
  Company Number: US-ALEXION-A201200364

PATIENT
  Sex: Male

DRUGS (8)
  1. SOLIRIS [Suspect]
     Indication: PAROXYSMAL NOCTURNAL HAEMOGLOBINURIA
     Dosage: 600 MG
     Route: 042
     Dates: start: 20070815
  2. IRON [Concomitant]
     Dosage: 65 MG, BID
  3. ASCORBIC ACID [Concomitant]
     Dosage: 500 MG, BID
  4. FOLIC ACID [Concomitant]
     Dosage: 400 MG, BID
  5. TAMSULOSIN HCL [Concomitant]
     Dosage: 04 MG, A.M.
  6. ENABLEX [Concomitant]
     Dosage: 15 MG, A.M.
  7. SOLIRIS [Suspect]
     Dosage: 900 MG
     Route: 042
  8. WARFARIN SODIUM [Concomitant]
     Dosage: 8 MG, A.M.

REACTIONS (1)
  - HEART RATE INCREASED [None]
